FAERS Safety Report 5814144-0 (Version None)
Quarter: 2008Q3

REPORT INFORMATION
  Report Type: 
  Country: None (occurrence: None)
  Receive Date: 20080717
  Receipt Date: 20080706
  Transmission Date: 20090109
  Serious: Yes (Other)
  Sender: FDA-Public Use
  Company Number: US-PFIZER INC-2008057260

PATIENT
  Sex: Female
  Weight: 72.6 kg

DRUGS (3)
  1. CHANTIX [Suspect]
     Indication: EX-TOBACCO USER
  2. ALL OTHER THERAPEUTIC PRODUCTS [Concomitant]
  3. ANALGESICS [Concomitant]

REACTIONS (2)
  - AURA [None]
  - TREMOR [None]
